FAERS Safety Report 7029686-2 (Version None)
Quarter: 2010Q4

REPORT INFORMATION
  Report Type: 
  Country: None (occurrence: None)
  Receive Date: 20101005
  Receipt Date: 20101005
  Transmission Date: 20110411
  Serious: Yes (Other)
  Sender: FDA-Public Use
  Company Number: None

PATIENT
  Age: 65 Year
  Sex: Male

DRUGS (3)
  1. BUPROPION HCL [Suspect]
     Indication: DEPRESSION
     Dosage: 150 MG X2 DAY ORAL
     Route: 048
     Dates: start: 20100710, end: 20100818
  2. BUPROPION HCL [Suspect]
     Indication: DEPRESSION
     Dosage: 150 MG X2 DOSES ORAL
     Route: 048
     Dates: start: 19950101, end: 20100710
  3. BUPROPION HCL [Suspect]
     Indication: DEPRESSION
     Dosage: 150 MG X2 DOSES ORAL
     Route: 048
     Dates: start: 20100818

REACTIONS (2)
  - DEPRESSION [None]
  - PRODUCT SUBSTITUTION ISSUE [None]
